FAERS Safety Report 7207247-X (Version None)
Quarter: 2011Q1

REPORT INFORMATION
  Report Type: 
  Country: None (occurrence: None)
  Receive Date: 20110103
  Receipt Date: 20101222
  Transmission Date: 20110831
  Serious: Yes (Death, Other)
  Sender: FDA-Public Use
  Company Number: JP-ROCHE-750515

PATIENT
  Age: 75 Year
  Sex: Male

DRUGS (11)
  1. FLUOROURACIL [Concomitant]
     Route: 042
     Dates: start: 20071222, end: 20090909
  2. FLUOROURACIL [Concomitant]
     Dosage: DOSE FORM: INTRAVENOUS DRIP
     Route: 042
     Dates: start: 20080307
  3. LEVOFOLINATE [Concomitant]
     Route: 041
     Dates: start: 20090528
  4. AVASTIN [Suspect]
     Route: 041
     Dates: start: 20090626
  5. FLUOROURACIL [Concomitant]
     Dosage: DOSE FORM: INTRAVENOUS BOLUS
     Route: 042
     Dates: start: 20090528
  6. LEVOFOLINATE [Concomitant]
     Route: 041
     Dates: start: 20080307
  7. IRINOTECAN HYDROCHLORIDE [Concomitant]
     Route: 041
     Dates: start: 20090528
  8. FLUOROURACIL [Concomitant]
     Dosage: DOSE FORM: INTRAVENOUS BOLUS
     Route: 042
     Dates: start: 20080307
  9. ELPLAT [Suspect]
     Indication: COLON CANCER METASTATIC
     Route: 041
     Dates: start: 20080307
  10. AVASTIN [Suspect]
     Indication: COLON CANCER METASTATIC
     Route: 041
     Dates: start: 20080307
  11. FLUOROURACIL [Concomitant]
     Dosage: DOSE FORM: INTRAVENOUS DRIP
     Route: 042
     Dates: start: 20090528

REACTIONS (3)
  - RESPIRATORY FAILURE [None]
  - HEPATIC ARTERY OCCLUSION [None]
  - HYPOAESTHESIA [None]
